FAERS Safety Report 15963808 (Version 1)
Quarter: 2019Q1

REPORT INFORMATION
  Report Type: Spontaneous
  Country: US (occurrence: US)
  Receive Date: 20190214
  Receipt Date: 20190214
  Transmission Date: 20190417
  Serious: Yes (Other)
  Sender: FDA-Public Use
  Company Number: US-GILEAD-2019-0390664

PATIENT
  Age: 60 Year
  Sex: Female

DRUGS (23)
  1. RANEXA [Suspect]
     Active Substance: RANOLAZINE
     Indication: PRODUCT USED FOR UNKNOWN INDICATION
     Route: 065
  2. KORLYM [Suspect]
     Active Substance: MIFEPRISTONE
     Indication: CUSHING^S SYNDROME
     Dosage: 300 MG, QD
     Route: 065
     Dates: start: 20171214
  3. TOUJEO [Concomitant]
     Active Substance: INSULIN GLARGINE
  4. NITROGLYCERIN. [Concomitant]
     Active Substance: NITROGLYCERIN
  5. CARVEDILOL. [Concomitant]
     Active Substance: CARVEDILOL
  6. FENOFIBRATE. [Concomitant]
     Active Substance: FENOFIBRATE
  7. HUMULIN R [Concomitant]
     Active Substance: INSULIN HUMAN
  8. CAL-CITRATE PLUS VITAMIN D [Concomitant]
  9. ELIQUIS [Concomitant]
     Active Substance: APIXABAN
  10. BYDUREON [Concomitant]
     Active Substance: EXENATIDE
  11. MAGNESIUM CITRATE. [Concomitant]
     Active Substance: MAGNESIUM CITRATE
  12. IRON [Concomitant]
     Active Substance: IRON
  13. PRADAXA [Concomitant]
     Active Substance: DABIGATRAN ETEXILATE MESYLATE
  14. AMIODARONE [Concomitant]
     Active Substance: AMIODARONE
  15. CRESTOR [Concomitant]
     Active Substance: ROSUVASTATIN CALCIUM
  16. DILTIAZEM. [Concomitant]
     Active Substance: DILTIAZEM
  17. HYDRALAZINE [Concomitant]
     Active Substance: HYDRALAZINE HYDROCHLORIDE
  18. VALSARTAN AND HYDROCHLOROTHIAZIDE [Concomitant]
     Active Substance: HYDROCHLOROTHIAZIDE\VALSARTAN
  19. MULTIVITAMIN [VITAMINS NOS] [Concomitant]
  20. FLAXSEED OIL [LINUM USITATISSIMUM SEED OIL] [Concomitant]
     Active Substance: LINSEED OIL
  21. PROBIOTIC [BIFIDOBACTERIUM LACTIS] [Concomitant]
  22. VITAMIN D [ERGOCALCIFEROL] [Concomitant]
     Active Substance: ERGOCALCIFEROL
  23. VITAMIN E [Concomitant]
     Active Substance: .ALPHA.-TOCOPHEROL

REACTIONS (5)
  - Heart rate abnormal [Unknown]
  - Urinary tract discomfort [Unknown]
  - Constipation [Unknown]
  - Oedema [Recovered/Resolved]
  - Blood creatinine increased [Not Recovered/Not Resolved]

NARRATIVE: CASE EVENT DATE: 201808
